FAERS Safety Report 7964771-X (Version None)
Quarter: 2011Q4

REPORT INFORMATION
  Report Type: 
  Country: None (occurrence: None)
  Receive Date: 20111208
  Receipt Date: 20111205
  Transmission Date: 20120403
  Serious: Yes (Hospitalization)
  Sender: FDA-Public Use
  Company Number: JP-AMGEN-JPNCT2011064910

PATIENT
  Age: 72 Year
  Sex: Female

DRUGS (3)
  1. BLINDED PLACEBO [Suspect]
     Indication: BREAST CANCER
     Dates: start: 20110804
  2. ALLEGRA [Suspect]
     Dosage: UNKNOWN
     Route: 065
  3. BLINDED DENOSUMAB [Suspect]
     Indication: BREAST CANCER
     Dates: start: 20110804

REACTIONS (1)
  - HEPATIC FUNCTION ABNORMAL [None]
